FAERS Safety Report 5616817-1 (Version None)
Quarter: 2008Q1

REPORT INFORMATION
  Report Type: 
  Country: None (occurrence: None)
  Receive Date: 20080204
  Receipt Date: 20080118
  Transmission Date: 20080703
  Serious: Yes (Hospitalization)
  Sender: FDA-Public Use
  Company Number: 230002J08COL

PATIENT
  Age: 31 Year
  Sex: Female

DRUGS (5)
  1. REBIF [Suspect]
     Indication: MULTIPLE SCLEROSIS
     Dosage: 44 MCG, 3 IN 1 WEEKS, SUBCUTANEOUS
     Route: 058
     Dates: start: 20070801
  2. OMEPRAZOLE [Concomitant]
  3. CARBAMAZEPINA (CARBAMAZEPINE) [Concomitant]
  4. WARFARIN (WARFARIN /00014801/) [Concomitant]
  5. AMITRIPTYLINE HCL [Concomitant]

REACTIONS (6)
  - DIZZINESS [None]
  - INJECTION SITE PAIN [None]
  - MULTIPLE SCLEROSIS RELAPSE [None]
  - PERIPHERAL PARALYSIS [None]
  - POOR QUALITY DRUG ADMINISTERED [None]
  - VOMITING [None]
